FAERS Safety Report 8048496-0 (Version None)
Quarter: 2012Q1

REPORT INFORMATION
  Report Type: 
  Country: None (occurrence: None)
  Receive Date: 20120117
  Receipt Date: 20120110
  Transmission Date: 20120608
  Serious: No
  Sender: FDA-Public Use
  Company Number: US-PFIZER INC-2012008387

PATIENT
  Sex: Female
  Weight: 72.562 kg

DRUGS (2)
  1. FELDENE [Suspect]
     Indication: OSTEOARTHRITIS
     Dosage: UNK, DAILY
     Route: 048
     Dates: start: 20110101, end: 20110101
  2. NEURONTIN [Concomitant]
     Indication: NERVOUS SYSTEM DISORDER
     Dosage: 300 MG, 2X/DAY

REACTIONS (2)
  - OEDEMA PERIPHERAL [None]
  - HYPERSENSITIVITY [None]
